FAERS Safety Report 7332947 (Version 5)
Quarter: 2015Q4

REPORT INFORMATION
  Report Type: Spontaneous
  Country: US (occurrence: US)
  Receive Date: 20100326
  Receipt Date: 20151124
  Transmission Date: 20160305
  Serious: Yes (Death, Hospitalization, Other)
  Sender: FDA-Public Use
  Company Number: US-BAYER-201017417NA

PATIENT
  Age: 36 Year
  Sex: Female
  Weight: 91 kg

DRUGS (24)
  1. TRAMADOL. [Concomitant]
     Active Substance: TRAMADOL
  2. SULFAMETHOXAZOLE/TRIMETHOPRIM [Concomitant]
     Active Substance: SULFAMETHOXAZOLE\TRIMETHOPRIM
     Dosage: ONE TABLET TWICE DAILY FOR 7 DAYS
  3. OCELLA [Suspect]
     Active Substance: DROSPIRENONE\ETHINYL ESTRADIOL
     Indication: MENSTRUATION IRREGULAR
     Dosage: UNK UNK, QD
     Route: 048
     Dates: start: 200607, end: 20090615
  4. IBUPROFEN. [Concomitant]
     Active Substance: IBUPROFEN
  5. LISINOPRIL. [Concomitant]
     Active Substance: LISINOPRIL
     Dosage: 5 MG (DAILY DOSE), ,
  6. LYRICA [Concomitant]
     Active Substance: PREGABALIN
     Dosage: 150 MG (DAILY DOSE), BID,
  7. METRONIDAZOLE. [Concomitant]
     Active Substance: METRONIDAZOLE
     Dosage: 500 MG, BID FOR 7 DAYS
  8. OCELLA [Suspect]
     Active Substance: DROSPIRENONE\ETHINYL ESTRADIOL
     Indication: ENDOMETRIOSIS
  9. ASPIRIN. [Concomitant]
     Active Substance: ASPIRIN
     Dosage: 325 MG (DAILY DOSE), ,
  10. METOPROLOL [Concomitant]
     Active Substance: METOPROLOL
  11. AMBIEN [Concomitant]
     Active Substance: ZOLPIDEM TARTRATE
  12. L THYROXINE [Concomitant]
     Active Substance: LEVOTHYROXINE SODIUM
     Indication: HYPOTHYROIDISM
  13. YASMIN [Suspect]
     Active Substance: DROSPIRENONE\ETHINYL ESTRADIOL
     Indication: MENSTRUATION IRREGULAR
     Dosage: UNK UNK, QD
     Route: 048
     Dates: start: 200607, end: 20090615
  14. COPAXONE [Concomitant]
     Active Substance: GLATIRAMER ACETATE
     Dosage: 20 MG (DAILY DOSE), ,
  15. VICODIN [Concomitant]
     Active Substance: ACETAMINOPHEN\HYDROCODONE BITARTRATE
     Indication: OPTIC NEURITIS
     Route: 048
  16. ZOCOR [Concomitant]
     Active Substance: SIMVASTATIN
     Dosage: 40 MG (DAILY DOSE), ,
  17. NITROGLYCERIN. [Concomitant]
     Active Substance: NITROGLYCERIN
  18. AMITRIPTYLINE [Concomitant]
     Active Substance: AMITRIPTYLINE
  19. CHANTIX [Concomitant]
     Active Substance: VARENICLINE TARTRATE
  20. YASMIN [Suspect]
     Active Substance: DROSPIRENONE\ETHINYL ESTRADIOL
     Indication: ENDOMETRIOSIS
     Dosage: UNK
  21. LUNESTA [Concomitant]
     Active Substance: ESZOPICLONE
  22. SIMVASTATIN. [Concomitant]
     Active Substance: SIMVASTATIN
     Dosage: 40 MG (DAILY DOSE), ,
  23. LOPRESSOR [Concomitant]
     Active Substance: METOPROLOL TARTRATE
     Dosage: 50 MG (DAILY DOSE), BID,
  24. FISH OIL [Concomitant]
     Active Substance: FISH OIL

REACTIONS (15)
  - Eye pain [Unknown]
  - Dyspnoea [Unknown]
  - Feeling of body temperature change [Unknown]
  - Death [Fatal]
  - Myocardial infarction [Unknown]
  - Blindness [Unknown]
  - Visual acuity reduced [Unknown]
  - Cough [Unknown]
  - Chest discomfort [Unknown]
  - Sinusitis [Unknown]
  - Headache [Unknown]
  - Optic neuropathy [Unknown]
  - Nausea [Unknown]
  - Facial pain [Unknown]
  - Chest pain [Unknown]

NARRATIVE: CASE EVENT DATE: 20070405
